FAERS Safety Report 8203731-0 (Version None)
Quarter: 2012Q1

REPORT INFORMATION
  Report Type: 
  Country: None (occurrence: None)
  Receive Date: 20120313
  Receipt Date: 20120303
  Transmission Date: 20120608
  Serious: Yes (Hospitalization)
  Sender: FDA-Public Use
  Company Number: US-PAR PHARMACEUTICAL, INC-2012SCPR004265

PATIENT

DRUGS (4)
  1. RISPERIDONE [Interacting]
     Dosage: UNK
  2. VALPROIC ACID [Concomitant]
     Indication: PRODUCT USED FOR UNKNOWN INDICATION
     Dosage: 500 MG TWICE DAILY
     Route: 065
  3. LAMISIL [Interacting]
     Indication: NAIL INFECTION
     Dosage: UNK, UNKNOWN
     Route: 065
  4. RISPERIDONE [Suspect]
     Indication: SCHIZOAFFECTIVE DISORDER BIPOLAR TYPE
     Dosage: 37.5 MG/1 INJECTION EVERY 2 WEEKS
     Route: 030

REACTIONS (2)
  - PSYCHOTIC DISORDER [None]
  - DRUG INTERACTION [None]
